FAERS Safety Report 21690264 (Version 1)
Quarter: 2022Q4

REPORT INFORMATION
  Report Type: Spontaneous
  Country: US (occurrence: US)
  Receive Date: 20221206
  Receipt Date: 20221206
  Transmission Date: 20230113
  Serious: No
  Sender: FDA-Public Use
  Company Number: US-BRAINTREE LABORATORIES, INC.-2022BTE00839

PATIENT
  Age: 61 Year
  Sex: Female
  Weight: 77.098 kg

DRUGS (10)
  1. SUTAB [Suspect]
     Active Substance: MAGNESIUM SULFATE\POTASSIUM CHLORIDE\SODIUM SULFATE
     Indication: Colonoscopy
     Dosage: 1 X 12 TABLETS, 1X
     Dates: start: 20221002, end: 20221002
  2. METHOTREXATE [Concomitant]
     Active Substance: METHOTREXATE
  3. PROTIC ACID [Concomitant]
  4. SPIRONOLACTONE [Concomitant]
     Active Substance: SPIRONOLACTONE
  5. NEXIUM [Concomitant]
     Active Substance: ESOMEPRAZOLE MAGNESIUM
  6. RINVOQ [Concomitant]
     Active Substance: UPADACITINIB
  7. ATORVASTATIN [Concomitant]
     Active Substance: ATORVASTATIN
  8. OLMESARTAN [Concomitant]
     Active Substance: OLMESARTAN
  9. UNSPECIFIED PRESCRIPTION IRON PILLS [Concomitant]
  10. VITAMIN D [Concomitant]
     Active Substance: VITAMIN D NOS

REACTIONS (5)
  - Hyperhidrosis [Recovering/Resolving]
  - Abdominal pain lower [Recovering/Resolving]
  - Abdominal pain upper [Recovering/Resolving]
  - Nausea [Not Recovered/Not Resolved]
  - Vomiting [Recovering/Resolving]

NARRATIVE: CASE EVENT DATE: 20221002
